FAERS Safety Report 6604012-9 (Version None)
Quarter: 2010Q1

REPORT INFORMATION
  Report Type: 
  Country: None (occurrence: None)
  Receive Date: 20100226
  Receipt Date: 20090407
  Transmission Date: 20100710
  Serious: No
  Sender: FDA-Public Use
  Company Number: A0778499A

PATIENT
  Age: 36 Year
  Sex: Female

DRUGS (1)
  1. LAMOTRIGINE [Suspect]
     Indication: DRUG USE FOR UNKNOWN INDICATION
     Dates: start: 20090101, end: 20090101

REACTIONS (1)
  - CONDITION AGGRAVATED [None]
